FAERS Safety Report 9692841 (Version 2)
Quarter: 2014Q2

REPORT INFORMATION
  Report Type: Spontaneous
  Country: US (occurrence: US)
  Receive Date: 20131118
  Receipt Date: 20140519
  Transmission Date: 20141212
  Serious: Yes (Hospitalization)
  Sender: FDA-Public Use
  Company Number: US-BAYER-2013-137714

PATIENT
  Age: 19 Year
  Sex: Female
  Weight: 78.01 kg

DRUGS (1)
  1. MIRENA [Suspect]
     Indication: CONTRACEPTION
     Dosage: 20 MCG/24HR, CONT
     Route: 015
     Dates: start: 20110930, end: 20120924

REACTIONS (12)
  - Uterine perforation [None]
  - Injury [None]
  - Pain [None]
  - Emotional distress [None]
  - Depression [None]
  - Anxiety [None]
  - Sexual dysfunction [None]
  - Medical device discomfort [None]
  - Performance status decreased [None]
  - Infertility female [None]
  - Dyspareunia [None]
  - Off label use [None]
